FAERS Safety Report 17787255 (Version 5)
Quarter: 2020Q2

REPORT INFORMATION
  Report Type: Spontaneous
  Country: JP (occurrence: JP)
  Receive Date: 20200514
  Receipt Date: 20200625
  Transmission Date: 20200714
  Serious: Yes (Death, Hospitalization, Other)
  Sender: FDA-Public Use
  Company Number: JP-009507513-2005JPN000327J

PATIENT
  Age: 78 Year
  Sex: Male
  Weight: 56 kg

DRUGS (41)
  1. NEXIUM [Concomitant]
     Active Substance: ESOMEPRAZOLE MAGNESIUM
     Dosage: UNK
     Route: 065
  2. MIYA-BM [Concomitant]
     Active Substance: CLOSTRIDIUM BUTYRICUM SPORES STRAIN M-55
     Dosage: UNK
     Route: 048
  3. SOLITA-T NO.1 [Concomitant]
     Dosage: UNK
     Route: 051
  4. VEEN-D [Concomitant]
     Active Substance: DEXTROSE
     Dosage: UNK
     Route: 051
  5. SOLACET F [Concomitant]
     Active Substance: CALCIUM CHLORIDE\POTASSIUM CHLORIDE\SODIUM ACETATE\SODIUM CHLORIDE
     Dosage: UNK
     Route: 051
  6. FENTANYL. [Concomitant]
     Active Substance: FENTANYL
     Dosage: UNK
     Route: 051
  7. AMLODIPINE [Concomitant]
     Active Substance: AMLODIPINE BESYLATE
     Dosage: UNK
     Route: 048
  8. MAGNESIUM SULFATE. [Concomitant]
     Active Substance: MAGNESIUM SULFATE
     Dosage: UNK
     Route: 065
  9. PITRESSIN [Concomitant]
     Active Substance: VASOPRESSIN
     Dosage: UNK
     Route: 051
  10. SOLITA-T NO.3 [Concomitant]
     Dosage: UNK
     Route: 051
  11. SODIUM PHOSPHATE [Concomitant]
     Active Substance: SODIUM PHOSPHATE
     Dosage: UNK
     Route: 065
  12. KCL CORRECTIVE [Concomitant]
     Dosage: UNK
     Route: 051
  13. OMEPRAZOLE. [Concomitant]
     Active Substance: OMEPRAZOLE
     Dosage: UNK
     Route: 051
  14. POTASSIUM CANRENOATE [Concomitant]
     Active Substance: CANRENOATE POTASSIUM
     Dosage: UNK
     Route: 051
  15. DORMICUM [Concomitant]
     Dosage: UNK
     Route: 051
  16. URIADEC [Concomitant]
     Active Substance: TOPIROXOSTAT
     Dosage: UNK
     Route: 048
  17. NEXIUM [Concomitant]
     Active Substance: ESOMEPRAZOLE MAGNESIUM
     Dosage: UNK
     Route: 048
  18. GLUCONSAN K [Concomitant]
     Active Substance: POTASSIUM GLUCONATE
     Dosage: UNK
     Route: 048
  19. HEPARIN CALCIUM [Concomitant]
     Active Substance: HEPARIN CALCIUM
     Route: 051
  20. BROTIZOLAM OD [Concomitant]
     Active Substance: BROTIZOLAM
     Dosage: UNK
     Route: 048
  21. SENNOSIDE [Concomitant]
     Active Substance: SENNOSIDES
     Dosage: UNK
     Route: 048
  22. CARBOCISTEINE [Concomitant]
     Active Substance: CARBOCYSTEINE
     Dosage: UNK
     Route: 048
  23. BAKTAR [Concomitant]
     Active Substance: SULFAMETHOXAZOLE\TRIMETHOPRIM
     Dosage: UNK
     Route: 048
  24. PHYSIO 35 [Concomitant]
     Active Substance: ELECTROLYTES NOS
     Dosage: UNK
     Route: 051
  25. VITAMEDIN [Concomitant]
     Active Substance: CYANOCOBALAMIN\PYRIDOXINE HYDROCHLORIDE\THIAMINE
     Dosage: UNK
     Route: 051
  26. FUROSEMIDE. [Concomitant]
     Active Substance: FUROSEMIDE
     Dosage: UNK
     Route: 051
  27. PRECEDEX [Concomitant]
     Active Substance: DEXMEDETOMIDINE HYDROCHLORIDE
     Dosage: UNK
     Route: 051
  28. MECOBALAMIN [Concomitant]
     Active Substance: METHYLCOBALAMIN
     Dosage: UNK
     Route: 048
  29. CARBOCISTEINE [Concomitant]
     Active Substance: CARBOCYSTEINE
     Dosage: UNK
     Route: 048
  30. ZINC. [Concomitant]
     Active Substance: ZINC
     Dosage: UNK
     Route: 048
  31. ROCURONIUM BROMIDE. [Concomitant]
     Active Substance: ROCURONIUM BROMIDE
     Dosage: UNK
     Route: 051
  32. KEYTRUDA [Suspect]
     Active Substance: PEMBROLIZUMAB
     Indication: TRANSITIONAL CELL CARCINOMA
     Dosage: 200 MILLIGRAM, Q3W
     Route: 041
     Dates: start: 20200309, end: 20200330
  33. METHYCOBAL [Concomitant]
     Active Substance: METHYLCOBALAMIN
     Dosage: UNK
     Route: 048
  34. HUMALOG [Concomitant]
     Active Substance: INSULIN LISPRO
     Dosage: UNK
     Route: 051
  35. VITAMEDIN [Concomitant]
     Active Substance: CYANOCOBALAMIN\PYRIDOXINE HYDROCHLORIDE\THIAMINE
     Dosage: UNK
     Route: 051
  36. NOR-ADRENALIN [Concomitant]
     Dosage: UNK
     Route: 051
  37. CALONAL [Concomitant]
     Active Substance: ACETAMINOPHEN
     Dosage: UNK
     Route: 048
  38. RIONA [Concomitant]
     Active Substance: FERRIC CITRATE ANHYDROUS
     Dosage: UNK
     Route: 048
  39. CLEANAL [Concomitant]
     Active Substance: FUDOSTEINE
     Dosage: UNK
     Route: 048
  40. LACTATED RINGERS SOLUTION [Concomitant]
     Active Substance: CALCIUM CHLORIDE\POTASSIUM CHLORIDE\SODIUM CHLORIDE\SODIUM LACTATE
     Dosage: UNK
     Route: 051
  41. SODIUM CHLORIDE. [Concomitant]
     Active Substance: SODIUM CHLORIDE
     Dosage: UNK
     Route: 051

REACTIONS (5)
  - Immune-mediated myositis [Fatal]
  - Septic shock [Recovered/Resolved]
  - Respiratory failure [Not Recovered/Not Resolved]
  - Myasthenia gravis [Fatal]
  - Off label use [Unknown]

NARRATIVE: CASE EVENT DATE: 20200409
